FAERS Safety Report 5909554-7 (Version None)
Quarter: 2008Q4

REPORT INFORMATION
  Report Type: 
  Country: None (occurrence: None)
  Receive Date: 20081002
  Receipt Date: 20080925
  Transmission Date: 20090506
  Serious: Yes (Other)
  Sender: FDA-Public Use
  Company Number: CHPA2008US16157

PATIENT
  Age: 42 Year
  Sex: Female
  Weight: 73.5 kg

DRUGS (2)
  1. EXCEDRIN (MIGRAINE) [Suspect]
     Indication: HUNGER
     Dosage: 20 DF, QD, ORAL
     Route: 048
  2. EXCEDRIN (MIGRAINE) [Suspect]
     Indication: PAIN
     Dosage: 20 DF, QD, ORAL
     Route: 048

REACTIONS (5)
  - ANAEMIA [None]
  - DRUG DEPENDENCE [None]
  - INTENTIONAL DRUG MISUSE [None]
  - OVERDOSE [None]
  - ULCER HAEMORRHAGE [None]
